FAERS Safety Report 20519776 (Version 1)
Quarter: 2022Q1

REPORT INFORMATION
  Report Type: Spontaneous
  Country: US (occurrence: None)
  Receive Date: 20220225
  Receipt Date: 20220225
  Transmission Date: 20220423
  Serious: No
  Sender: FDA-Public Use
  Company Number: 2022A049079

PATIENT
  Sex: Female
  Weight: 45.4 kg

DRUGS (3)
  1. BUDESONIDE\FORMOTEROL\GLYCOPYRRONIUM [Suspect]
     Active Substance: BUDESONIDE\FORMOTEROL\GLYCOPYRRONIUM
     Indication: Asthma
     Dosage: 2 PUFFS, TWO TIMES A DAY
     Route: 055
     Dates: start: 202110
  2. SYMBICORT [Suspect]
     Active Substance: BUDESONIDE\FORMOTEROL FUMARATE DIHYDRATE
     Indication: Asthma
     Route: 055
  3. MOTRIN [Suspect]
     Active Substance: IBUPROFEN
     Route: 065

REACTIONS (5)
  - Dysphonia [Unknown]
  - Hypertension [Unknown]
  - Tremor [Unknown]
  - Malaise [Unknown]
  - Abdominal pain upper [Unknown]
